FAERS Safety Report 24044439 (Version 2)
Quarter: 2024Q3

REPORT INFORMATION
  Report Type: Spontaneous
  Country: FR (occurrence: FR)
  Receive Date: 20240703
  Receipt Date: 20240730
  Transmission Date: 20241017
  Serious: Yes (Life-Threatening)
  Sender: AUROBINDO
  Company Number: FR-AFSSAPS-AN2024000825

PATIENT
  Age: 77 Year
  Sex: Male

DRUGS (12)
  1. FLUCONAZOLE [Interacting]
     Active Substance: FLUCONAZOLE
     Indication: Fungal infection
     Dosage: 100 MILLIGRAM, ONCE A DAY
     Route: 048
     Dates: start: 20240430
  2. MIDAZOLAM [Interacting]
     Active Substance: MIDAZOLAM
     Indication: Anxiety
     Dosage: 0.4 MILLIGRAM, EVERY HOUR
     Route: 042
     Dates: start: 20240427
  3. OXYCODONE HYDROCHLORIDE [Interacting]
     Active Substance: OXYCODONE HYDROCHLORIDE
     Indication: Pain
     Dosage: 0.5 MILLIGRAM, EVERY HOUR
     Route: 042
     Dates: start: 20240424, end: 20240504
  4. CHLORPROMAZINE [Suspect]
     Active Substance: CHLORPROMAZINE
     Indication: Product used for unknown indication
     Dosage: 1 DOSAGE FORM, ONCE A DAY
     Route: 042
     Dates: start: 20240424, end: 20240503
  5. KETAMINE [Concomitant]
     Active Substance: KETAMINE
     Indication: Product used for unknown indication
     Dosage: 50 MILLIGRAM, ONCE A DAY
     Route: 042
     Dates: start: 20240425, end: 20240502
  6. DEPAKOTE [Concomitant]
     Active Substance: DIVALPROEX SODIUM
     Indication: Product used for unknown indication
     Dosage: 1 GRAM, ONCE A DAY
     Route: 048
     Dates: start: 20240502
  7. ENOXAPARIN SODIUM [Concomitant]
     Active Substance: ENOXAPARIN SODIUM
     Indication: Product used for unknown indication
     Dosage: 4000 INTERNATIONAL UNIT, ONCE A DAY
     Route: 058
     Dates: start: 20240426
  8. TROPATEPINE HYDROCHLORIDE [Concomitant]
     Active Substance: TROPATEPINE HYDROCHLORIDE
     Indication: Product used for unknown indication
     Dosage: 1 DOSAGE FORM, ONCE A DAY
     Route: 048
     Dates: start: 20240502
  9. MORPHINE [Concomitant]
     Active Substance: MORPHINE
     Indication: Product used for unknown indication
     Dosage: 6 MILLIGRAM, ONCE A DAY
     Route: 042
     Dates: start: 20240423, end: 20240423
  10. ZYPREXA [Concomitant]
     Active Substance: OLANZAPINE
     Indication: Product used for unknown indication
     Dosage: 1 DOSAGE FORM, ONCE A DAY
     Route: 048
     Dates: start: 20240502
  11. PIPERACILLIN SODIUM\TAZOBACTAM SODIUM [Concomitant]
     Active Substance: PIPERACILLIN SODIUM\TAZOBACTAM SODIUM
     Indication: Product used for unknown indication
     Dosage: 12 GRAM, ONCE A DAY
     Route: 042
     Dates: start: 20240424
  12. BIMATOPROST\TIMOLOL [Concomitant]
     Active Substance: BIMATOPROST\TIMOLOL
     Indication: Product used for unknown indication
     Dosage: 2 DOSAGE FORM, ONCE A DAY
     Dates: start: 20240503

REACTIONS (1)
  - Drug interaction [Not Recovered/Not Resolved]

NARRATIVE: CASE EVENT DATE: 20240430
